FAERS Safety Report 7713072-3 (Version None)
Quarter: 2011Q3

REPORT INFORMATION
  Report Type: 
  Country: None (occurrence: None)
  Receive Date: 20110826
  Receipt Date: 20110307
  Transmission Date: 20111222
  Serious: Yes (Hospitalization, Other)
  Sender: FDA-Public Use
  Company Number: US-BAYER-201036327NA

PATIENT
  Sex: Female
  Weight: 58.05 kg

DRUGS (7)
  1. YAZ [Suspect]
     Indication: PRODUCT USED FOR UNKNOWN INDICATION
     Route: 048
     Dates: start: 20040201, end: 20090701
  2. ASCORBIC ACID [Concomitant]
  3. YASMIN [Suspect]
     Dosage: UNK
     Dates: start: 20010101, end: 20080101
  4. YAZ [Suspect]
     Dosage: UNK
     Dates: start: 20010101, end: 20080101
  5. LOESTRIN 1.5/30 [Concomitant]
     Indication: ORAL CONTRACEPTION
     Dosage: UNK
     Dates: start: 20080101
  6. YASMIN [Suspect]
     Indication: PRODUCT USED FOR UNKNOWN INDICATION
     Route: 048
     Dates: start: 20040201, end: 20090701
  7. ADVIL LIQUI-GELS [Concomitant]

REACTIONS (2)
  - DEEP VEIN THROMBOSIS [None]
  - VEIN DISORDER [None]
